FAERS Safety Report 17522738 (Version 2)
Quarter: 2020Q1

REPORT INFORMATION
  Report Type: Spontaneous
  Country: DE (occurrence: DE)
  Receive Date: 20200311
  Receipt Date: 20200331
  Transmission Date: 20200409
  Serious: Yes (Other)
  Sender: FDA-Public Use
  Company Number: DE-AUROBINDO-AUR-APL-2020-007677

PATIENT
  Age: 62 Year
  Sex: Male

DRUGS (2)
  1. RIBAVIRIN CAPSULE [Suspect]
     Active Substance: RIBAVIRIN
     Indication: HEPATITIS E
     Dosage: UNK, RESTARTED AND STOPPED AFTER HEV REAPPEARED
     Route: 048
  2. RIBAVIRIN CAPSULE [Suspect]
     Active Substance: RIBAVIRIN
     Dosage: 1200 MILLIGRAM, ONCE A DAY (STOPPED AFTER 3 MONTHS )
     Route: 048
     Dates: start: 2016

REACTIONS (3)
  - Product use in unapproved indication [Unknown]
  - Drug resistance [Unknown]
  - Acquired gene mutation [Unknown]

NARRATIVE: CASE EVENT DATE: 2016
